FAERS Safety Report 12495153 (Version 1)
Quarter: 2016Q2

REPORT INFORMATION
  Report Type: Report from Study
  Country: CR (occurrence: CR)
  Receive Date: 20160624
  Receipt Date: 20160624
  Transmission Date: 20160815
  Serious: Yes (Other)
  Sender: FDA-Public Use
  Company Number: PHHY2016CR030000

PATIENT
  Age: 94 Year
  Sex: Female

DRUGS (2)
  1. CO-DIOVAN [Suspect]
     Active Substance: HYDROCHLOROTHIAZIDE\VALSARTAN
     Indication: PRODUCT USED FOR UNKNOWN INDICATION
     Dosage: (25 MG OF HYDROCHLOROTHIAZIDE, 160MG OF VALSARTAN)
     Route: 065
  2. DIOVAN [Suspect]
     Active Substance: VALSARTAN
     Indication: PRODUCT USED FOR UNKNOWN INDICATION
     Dosage: 80 MG, QOD
     Route: 065

REACTIONS (6)
  - Hip fracture [Unknown]
  - Wrong technique in product usage process [Unknown]
  - Fall [Unknown]
  - Blood sodium increased [Unknown]
  - Senile dementia [Unknown]
  - Gait disturbance [Unknown]
